FAERS Safety Report 4914759-8 (Version None)
Quarter: 2006Q1

REPORT INFORMATION
  Report Type: 
  Country: None (occurrence: None)
  Receive Date: 20060216
  Receipt Date: 20060209
  Transmission Date: 20060701
  Serious: Yes (Hospitalization)
  Sender: FDA-Public Use
  Company Number: JP-MERCK-0602USA04078

PATIENT
  Age: 63 Year
  Sex: Male
  Weight: 68 kg

DRUGS (10)
  1. PEPCID [Suspect]
     Route: 048
  2. NIFEDIPINE [Concomitant]
     Route: 065
  3. ENALAPRIL MALEATE [Concomitant]
     Route: 065
  4. MECOBALAMIN [Concomitant]
     Route: 065
  5. METFORMIN [Concomitant]
     Route: 065
  6. REBAMIPIDE [Concomitant]
     Route: 065
  7. ALLOPURINOL [Concomitant]
     Route: 065
  8. ASPIRIN [Concomitant]
     Route: 065
  9. [THERAPY UNSPECIFIED] [Suspect]
     Indication: POLLAKIURIA
     Route: 065
     Dates: start: 20050101, end: 20050101
  10. [THERAPY UNSPECIFIED] [Suspect]
     Indication: HEPATITIS C
     Route: 065
     Dates: end: 20050101

REACTIONS (4)
  - CARDIAC FAILURE CONGESTIVE [None]
  - ESSENTIAL HYPERTENSION [None]
  - GALLBLADDER POLYP [None]
  - PSEUDOALDOSTERONISM [None]
